FAERS Safety Report 5319139-1 (Version None)
Quarter: 2007Q2

REPORT INFORMATION
  Report Type: 
  Country: None (occurrence: None)
  Receive Date: 20070508
  Receipt Date: 20070427
  Transmission Date: 20071010
  Serious: Yes (Hospitalization)
  Sender: FDA-Public Use
  Company Number: PHHO2007MX07732

PATIENT
  Age: 66 Year
  Sex: Female

DRUGS (2)
  1. ZELMAC / HTF 919A [Suspect]
     Indication: IRRITABLE BOWEL SYNDROME
     Dosage: 6 MG, BID
     Route: 048
     Dates: end: 20070419
  2. RIOPAN [Concomitant]

REACTIONS (2)
  - EYE INFECTION [None]
  - EYE OPERATION [None]
